FAERS Safety Report 23708934 (Version 1)
Quarter: 2024Q2

REPORT INFORMATION
  Report Type: Spontaneous
  Country: US (occurrence: US)
  Receive Date: 20240404
  Receipt Date: 20240404
  Transmission Date: 20240716
  Serious: No
  Sender: FDA-Public Use
  Company Number: US-BRISTOL-MYERS SQUIBB COMPANY-2024-053908

PATIENT
  Age: 60 Year
  Sex: Female

DRUGS (1)
  1. POMALYST [Suspect]
     Active Substance: POMALIDOMIDE
     Indication: Plasma cell myeloma
     Route: 048
     Dates: start: 202207

REACTIONS (6)
  - Skin exfoliation [Unknown]
  - Wound haemorrhage [Unknown]
  - Cardiac disorder [Unknown]
  - Visual impairment [Unknown]
  - Contusion [Unknown]
  - Varicose vein [Unknown]
